FAERS Safety Report 25089301 (Version 1)
Quarter: 2025Q1

REPORT INFORMATION
  Report Type: Spontaneous
  Country: US (occurrence: US)
  Receive Date: 20250318
  Receipt Date: 20250318
  Transmission Date: 20250408
  Serious: No
  Sender: ALKERMES
  Company Number: US-ALKERMES INC.-ALK-2025-000571

PATIENT

DRUGS (1)
  1. LYBALVI [Suspect]
     Active Substance: OLANZAPINE\SAMIDORPHAN L-MALATE
     Indication: Product used for unknown indication
     Route: 048

REACTIONS (5)
  - Hangover [Unknown]
  - Insomnia [Unknown]
  - Feeling abnormal [Unknown]
  - Muscle twitching [Unknown]
  - Dizziness [Unknown]

NARRATIVE: CASE EVENT DATE: 20250108
